FAERS Safety Report 6718750-0 (Version None)
Quarter: 2010Q2

REPORT INFORMATION
  Report Type: 
  Country: None (occurrence: None)
  Receive Date: 20100511
  Receipt Date: 20100507
  Transmission Date: 20101027
  Serious: Yes (Life-Threatening, Hospitalization)
  Sender: FDA-Public Use
  Company Number: FR-BIOGENIDEC-2009BI025427

PATIENT
  Age: 40 Year
  Sex: Female
  Weight: 63 kg

DRUGS (15)
  1. TYSABRI [Suspect]
     Indication: MULTIPLE SCLEROSIS
     Route: 042
     Dates: start: 20080401, end: 20090704
  2. TYSABRI [Suspect]
     Route: 042
     Dates: start: 20100101
  3. SKENAN [Concomitant]
  4. CYMBALTA [Concomitant]
  5. LYRICA [Concomitant]
  6. IBUPROFEN [Concomitant]
  7. LAMICTAL CD [Concomitant]
  8. OROCAL [Concomitant]
  9. PIASCLEDINE [Concomitant]
  10. LEVOTHYROX [Concomitant]
  11. AERIUS [Concomitant]
  12. ACTISKENAN [Concomitant]
  13. NOCERTONE [Concomitant]
  14. RIVOTRIL [Concomitant]
  15. LIORESAL [Concomitant]

REACTIONS (2)
  - CARDIOGENIC SHOCK [None]
  - MYOCARDITIS [None]
